FAERS Safety Report 20016601 (Version 1)
Quarter: 2021Q4

REPORT INFORMATION
  Report Type: Spontaneous
  Country: US (occurrence: None)
  Receive Date: 20211104
  Receipt Date: 20211104
  Transmission Date: 20220304
  Serious: Yes (Disabling)
  Sender: FDA-Public Use
  Company Number: None

PATIENT
  Age: 60 Year
  Sex: Female
  Weight: 75.6 kg

DRUGS (1)
  1. LEVOFLOXACIN [Suspect]
     Active Substance: LEVOFLOXACIN
     Indication: Urinary tract infection
     Dosage: OTHER QUANTITY : 7 TABLET(S);?FREQUENCY : DAILY;?
     Route: 048
     Dates: start: 20211018, end: 20211022

REACTIONS (13)
  - Confusional state [None]
  - Speech disorder [None]
  - Tendon disorder [None]
  - Fatigue [None]
  - Ligament disorder [None]
  - Muscle disorder [None]
  - Arthropathy [None]
  - Fibromyalgia [None]
  - Rheumatoid arthritis [None]
  - Restless legs syndrome [None]
  - Neuropathy peripheral [None]
  - Costochondritis [None]
  - Neurogenic bladder [None]

NARRATIVE: CASE EVENT DATE: 20211018
